FAERS Safety Report 6807711-9 (Version None)
Quarter: 2010Q2

REPORT INFORMATION
  Report Type: 
  Country: None (occurrence: None)
  Receive Date: 20100629
  Receipt Date: 20081203
  Transmission Date: 20101027
  Serious: No
  Sender: FDA-Public Use
  Company Number: US-PFIZER INC-2008094153

PATIENT
  Sex: Male
  Weight: 72.7 kg

DRUGS (6)
  1. VIAGRA [Suspect]
     Indication: ERECTILE DYSFUNCTION
  2. LEVITRA [Concomitant]
  3. CIALIS [Concomitant]
  4. FINASTERIDE [Concomitant]
     Indication: HYPERTENSION
  5. TERAZOSIN HCL [Concomitant]
     Indication: HYPERTENSION
  6. ALL OTHER THERAPEUTIC PRODUCTS [Concomitant]
     Indication: BLADDER DISORDER

REACTIONS (1)
  - DRUG INEFFECTIVE [None]
